FAERS Safety Report 7499079-2 (Version None)
Quarter: 2011Q2

REPORT INFORMATION
  Report Type: 
  Country: None (occurrence: None)
  Receive Date: 20110516
  Receipt Date: 20110502
  Transmission Date: 20111010
  Serious: Yes (Hospitalization)
  Sender: FDA-Public Use
  Company Number: 028451

PATIENT
  Sex: Female

DRUGS (9)
  1. MULTI-VITAMINS [Concomitant]
  2. HUMALOG [Concomitant]
  3. CIMZIA [Suspect]
     Dosage: (400 MG 1X/4 WEEKS SUBCUTANEOUS)
     Route: 058
     Dates: start: 20101208
  4. FENOFIBRATE [Concomitant]
  5. PANCRELIPASE [Concomitant]
  6. GEMFIBROZIL [Concomitant]
  7. ZOLOFT [Concomitant]
  8. PREDNISONE [Concomitant]
  9. LANTUS [Concomitant]

REACTIONS (12)
  - HYPERTRIGLYCERIDAEMIA [None]
  - DIABETES MELLITUS INADEQUATE CONTROL [None]
  - PAIN [None]
  - CONDITION AGGRAVATED [None]
  - HYPONATRAEMIA [None]
  - HYPOCALCAEMIA [None]
  - BLOOD UREA DECREASED [None]
  - METABOLIC ACIDOSIS [None]
  - ANXIETY [None]
  - TREATMENT NONCOMPLIANCE [None]
  - PANCREATITIS ACUTE [None]
  - MALNUTRITION [None]
